FAERS Safety Report 20177356 (Version 1)
Quarter: 2021Q4

REPORT INFORMATION
  Report Type: Spontaneous
  Country: US (occurrence: None)
  Receive Date: 20211212
  Receipt Date: 20211212
  Transmission Date: 20220303
  Serious: Yes (Other)
  Sender: FDA-Public Use
  Company Number: None

PATIENT
  Age: 25 Year
  Sex: Female
  Weight: 70.65 kg

DRUGS (3)
  1. DULOXETINE [Suspect]
     Active Substance: DULOXETINE
     Indication: Fibromyalgia
     Dosage: OTHER QUANTITY : 90 CAPSULE(S);?FREQUENCY : TWICE A DAY;?
     Route: 048
     Dates: start: 20210511, end: 20211102
  2. DULOXETINE [Suspect]
     Active Substance: DULOXETINE
     Indication: Pain management
  3. SEASONIQUE [Concomitant]
     Active Substance: ETHINYL ESTRADIOL\LEVONORGESTREL

REACTIONS (5)
  - Withdrawal syndrome [None]
  - Vomiting [None]
  - Migraine [None]
  - Electric shock sensation [None]
  - Pain [None]

NARRATIVE: CASE EVENT DATE: 20211109
